FAERS Safety Report 20460633 (Version 1)
Quarter: 2022Q1

REPORT INFORMATION
  Report Type: Report from Study
  Country: US (occurrence: US)
  Receive Date: 20220211
  Receipt Date: 20220211
  Transmission Date: 20220423
  Serious: Yes (Hospitalization)
  Sender: FDA-Public Use
  Company Number: US-JAZZ-2021-US-015726

PATIENT
  Age: 9 Year
  Sex: Male
  Weight: 48.6 kg

DRUGS (14)
  1. ASPARAGINASE ERWINIA CHRYSANTHEMI [Suspect]
     Active Substance: ASPARAGINASE ERWINIA CHRYSANTHEMI
     Indication: Acute lymphocytic leukaemia
     Dosage: 31.25 MILLIGRAM, 3XWEEKLY PER 2W COURSE
     Route: 030
     Dates: start: 20210127, end: 20210208
  2. ASPARAGINASE ERWINIA CHRYSANTHEMI [Suspect]
     Active Substance: ASPARAGINASE ERWINIA CHRYSANTHEMI
     Dosage: UNK, 3XWEEKLY PER 2W COURSE
     Route: 030
     Dates: start: 20210226, end: 20210310
  3. ASPARAGINASE ERWINIA CHRYSANTHEMI [Suspect]
     Active Substance: ASPARAGINASE ERWINIA CHRYSANTHEMI
     Dosage: 70.5 MILLIGRAM, 3XWEEKLY PER 2W COURSE
     Route: 030
     Dates: end: 20210820
  4. DEXAMETHASONE [Suspect]
     Active Substance: DEXAMETHASONE
     Dosage: 7 MILLIGRAM, BID INTERMITTENT
     Route: 048
     Dates: start: 20210811
  5. DOXORUBICIN [Suspect]
     Active Substance: DOXORUBICIN
     Dosage: 35 MILLIGRAM INTERMITTENT
     Route: 042
     Dates: start: 20210811
  6. METHOTREXATE [Suspect]
     Active Substance: METHOTREXATE
     Dosage: 15 MILLIGRAM, INTERMITTENT
     Route: 037
     Dates: start: 20201208
  7. VINCRISTINE [Suspect]
     Active Substance: VINCRISTINE
     Dosage: 2 MILLIGRAM, INTERMITTENT
     Route: 042
     Dates: start: 20201201
  8. FLUCONAZOLE [Concomitant]
     Active Substance: FLUCONAZOLE
     Dosage: 200 MILLIGRAM, QD
     Route: 048
     Dates: start: 20210811
  9. SENNA LEAF [Concomitant]
     Active Substance: SENNA LEAF
     Dosage: 13.2 MILLIGRAM, PRN QHS
     Route: 048
     Dates: start: 20210104
  10. MIRALAX [Concomitant]
     Active Substance: POLYETHYLENE GLYCOL 3350
     Dosage: 17 GRAM, QD
     Route: 048
     Dates: start: 20210131
  11. BACTRIM [Concomitant]
     Active Substance: SULFAMETHOXAZOLE\TRIMETHOPRIM
     Dosage: 400/80 MG, BID SATSUN
     Route: 048
     Dates: start: 20201204
  12. CALCIUM CARBONATE [Concomitant]
     Active Substance: CALCIUM CARBONATE
     Dosage: 500 MILLIGRAM, BID
     Route: 048
     Dates: start: 20201221
  13. ONDANSETRON [Concomitant]
     Active Substance: ONDANSETRON
     Dosage: 4 MILLIGRAM, PRN
     Route: 048
     Dates: start: 20210116
  14. GRANISETRON [Concomitant]
     Active Substance: GRANISETRON
     Dosage: UNK, PRN
     Route: 042
     Dates: start: 20210430

REACTIONS (1)
  - Pyrexia [Recovered/Resolved]

NARRATIVE: CASE EVENT DATE: 20210820
